FAERS Safety Report 6140544-8 (Version None)
Quarter: 2009Q2

REPORT INFORMATION
  Report Type: 
  Country: None (occurrence: None)
  Receive Date: 20090402
  Receipt Date: 20090324
  Transmission Date: 20091009
  Serious: Yes (Hospitalization)
  Sender: FDA-Public Use
  Company Number: BR-RANBAXY-2009R5-22992

PATIENT

DRUGS (1)
  1. AMOXICILLIN AND CLAVULANATE POTASSIUM [Suspect]
     Indication: PHARYNGITIS
     Dosage: 2.5 ML, BID
     Route: 048
     Dates: start: 20090313, end: 20090322

REACTIONS (3)
  - CRYING [None]
  - OROPHARYNGEAL PLAQUE [None]
  - PYREXIA [None]
